FAERS Safety Report 5847330-4 (Version None)
Quarter: 2008Q3

REPORT INFORMATION
  Report Type: 
  Country: None (occurrence: None)
  Receive Date: 20080731
  Receipt Date: 20080506
  Transmission Date: 20090109
  Serious: No
  Sender: FDA-Public Use
  Company Number: US200805001280

PATIENT
  Age: 46 Year
  Sex: Female

DRUGS (1)
  1. BYETTA [Suspect]
     Indication: DIABETES MELLITUS
     Dosage: 2/D, SUBCUTANEOUS
     Route: 058
     Dates: start: 20070101, end: 20080401

REACTIONS (2)
  - DRUG EFFECT DECREASED [None]
  - WEIGHT INCREASED [None]
